FAERS Safety Report 6108903-7 (Version None)
Quarter: 2009Q1

REPORT INFORMATION
  Report Type: 
  Country: None (occurrence: None)
  Receive Date: 20090306
  Receipt Date: 20090303
  Transmission Date: 20090719
  Serious: Yes (Hospitalization)
  Sender: FDA-Public Use
  Company Number: GXKR2009DE02524

PATIENT
  Age: 92 Year
  Sex: Female
  Weight: 85 kg

DRUGS (9)
  1. SPIRONOLACTONE [Suspect]
     Indication: HYPERTENSION
     Dosage: 25 MG/DAILY, ORAL
     Route: 048
  2. FUROSEMIDE        (FUROSEMIDE) TABLET [Suspect]
     Indication: RENAL FAILURE
     Dosage: 40 MG/DAILY, ORAL
     Route: 048
  3. ENOXAPARIN SODIUM [Suspect]
     Indication: PULMONARY EMBOLISM
     Dosage: 20 MG/DAILY, SUBCUTANEOUS
     Route: 058
     Dates: end: 20081030
  4. PANTOPRAZOLE SODIUM [Concomitant]
  5. NORVASC [Concomitant]
  6. MOVICOL (MACROGOL, POTASSIUM CHLORIDE, SODIUM BICARCBONATE, SODIUM CHL [Concomitant]
  7. EUNERPAN (MELPERONE HYDROCHLORIDE) [Concomitant]
  8. ATACAND [Concomitant]
  9. ARICEPT [Concomitant]

REACTIONS (3)
  - ANAEMIA [None]
  - HYPERKALAEMIA [None]
  - HYPONATRAEMIA [None]
